FAERS Safety Report 17699514 (Version 1)
Quarter: 2020Q2

REPORT INFORMATION
  Report Type: Spontaneous
  Country: US (occurrence: US)
  Receive Date: 20200423
  Receipt Date: 20200423
  Transmission Date: 20200714
  Serious: Yes (Hospitalization)
  Sender: FDA-Public Use
  Company Number: US-JNJFOC-20200425299

PATIENT
  Sex: Female

DRUGS (11)
  1. CIPROFLOXACIN. [Concomitant]
     Active Substance: CIPROFLOXACIN
     Dates: start: 20180529
  2. AUGMENTIN [Concomitant]
     Active Substance: AMOXICILLIN\CLAVULANATE POTASSIUM
     Dates: start: 20180529
  3. APIXABAN [Suspect]
     Active Substance: APIXABAN
     Indication: PRODUCT USED FOR UNKNOWN INDICATION
     Route: 065
     Dates: start: 20180603
  4. LIDOCAINE. [Concomitant]
     Active Substance: LIDOCAINE
     Dates: start: 20180531
  5. FERROUS SULFATE. [Concomitant]
     Active Substance: FERROUS SULFATE
     Dates: end: 20181002
  6. DYNAPEN [Concomitant]
     Active Substance: DICLOXACILLIN SODIUM
     Indication: DEVICE RELATED INFECTION
     Route: 048
     Dates: start: 20180925, end: 20181226
  7. DEMADEX [Concomitant]
     Active Substance: TORSEMIDE
     Indication: FLUID RETENTION
     Dates: start: 20180817
  8. DEMADEX [Concomitant]
     Active Substance: TORSEMIDE
     Indication: FLUID RETENTION
     Dosage: 150 MG, AM AND 100 MG,?#2 PM; UNKNOWN
     Dates: start: 20181002
  9. DICLOXACILLIN [Concomitant]
     Active Substance: DICLOXACILLIN
     Indication: DEVICE RELATED INFECTION
     Route: 048
     Dates: start: 20180925, end: 20181226
  10. XARELTO [Suspect]
     Active Substance: RIVAROXABAN
     Indication: PRODUCT USED FOR UNKNOWN INDICATION
     Route: 048
  11. DILTIAZEM. [Concomitant]
     Active Substance: DILTIAZEM
     Dates: start: 20180724

REACTIONS (1)
  - Traumatic haematoma [Recovered/Resolved with Sequelae]
